FAERS Safety Report 21230254 (Version 2)
Quarter: 2022Q3

REPORT INFORMATION
  Report Type: Spontaneous
  Country: IN (occurrence: IN)
  Receive Date: 20220818
  Receipt Date: 20220822
  Transmission Date: 20221027
  Serious: Yes (Death)
  Sender: FDA-Public Use
  Company Number: IN-PFIZER INC-202101128630

PATIENT
  Age: 72 Year
  Sex: Female

DRUGS (3)
  1. PALBOCICLIB [Suspect]
     Active Substance: PALBOCICLIB
     Dosage: 1-0-0 X 21 DAYS
     Route: 048
     Dates: start: 20201216
  2. FULVESTRANT [Concomitant]
     Active Substance: FULVESTRANT
     Dosage: 250 MG
     Route: 030
  3. ASPIRIN [Concomitant]
     Active Substance: ASPIRIN
     Dosage: UNK

REACTIONS (3)
  - Death [Fatal]
  - Pallor [Unknown]
  - Bone lesion [Unknown]

NARRATIVE: CASE EVENT DATE: 20220706
